FAERS Safety Report 8764286 (Version 2)
Quarter: 2012Q4

REPORT INFORMATION
  Report Type: 
  Country: ZA (occurrence: ZA)
  Receive Date: 20120831
  Receipt Date: 20120920
  Transmission Date: 20130627
  Serious: Yes (Hospitalization)
  Sender: FDA-Public Use
  Company Number: ZA-NOVOPROD-358719

PATIENT
  Sex: Male

DRUGS (2)
  1. PROTAPHANE FLEXPEN [Suspect]
     Indication: GESTATIONAL DIABETES
     Dosage: 10 U, qd
     Route: 064
     Dates: start: 20120426
  2. NOVORAPID FLEXPEN [Suspect]
     Indication: GESTATIONAL DIABETES
     Dosage: 18 U, qd
     Route: 064
     Dates: start: 20110426

REACTIONS (2)
  - Aphagia [Recovered/Resolved]
  - Foetal exposure during pregnancy [Unknown]
